FAERS Safety Report 8401239-0 (Version None)
Quarter: 2012Q2

REPORT INFORMATION
  Report Type: 
  Country: None (occurrence: None)
  Receive Date: 20120601
  Receipt Date: 20120525
  Transmission Date: 20120825
  Serious: Yes (Other)
  Sender: FDA-Public Use
  Company Number: US-TEVA-340155USA

PATIENT
  Age: 59 Year
  Sex: Male

DRUGS (2)
  1. TREANDA [Suspect]
     Indication: PRODUCT USED FOR UNKNOWN INDICATION
     Dosage: 90 PER METER SQUARED
     Route: 042
  2. RITUXAN [Suspect]

REACTIONS (1)
  - PLEURAL EFFUSION [None]
